FAERS Safety Report 8541294-0 (Version None)
Quarter: 2012Q3

REPORT INFORMATION
  Report Type: 
  Country: None (occurrence: None)
  Receive Date: 20120726
  Receipt Date: 20110926
  Transmission Date: 20120928
  Serious: No
  Sender: FDA-Public Use
  Company Number: US-ASTRAZENECA-2011SE56745

PATIENT
  Age: 89 Year
  Sex: Female
  Weight: 72.6 kg

DRUGS (8)
  1. BISOPROLOL FUMARATE [Concomitant]
  2. ARICEPT [Concomitant]
  3. SEROQUEL [Suspect]
     Indication: DELUSIONAL DISORDER, UNSPECIFIED TYPE
     Route: 048
     Dates: start: 20080101
  4. ALPRENOLOL [Concomitant]
  5. SEROQUEL [Suspect]
     Indication: MENTAL DISORDER
     Route: 048
     Dates: start: 20080101
  6. SEROQUEL [Suspect]
     Indication: PARANOIA
     Route: 048
     Dates: start: 20080101
  7. SYNTHROID [Concomitant]
  8. LEXAPRO [Concomitant]

REACTIONS (5)
  - OFF LABEL USE [None]
  - PARANOIA [None]
  - WEIGHT DECREASED [None]
  - DELUSIONAL DISORDER, UNSPECIFIED TYPE [None]
  - DRUG DOSE OMISSION [None]
